FAERS Safety Report 11761280 (Version 1)
Quarter: 2015Q4

REPORT INFORMATION
  Report Type: Spontaneous
  Country: SG (occurrence: SG)
  Receive Date: 20151120
  Receipt Date: 20151120
  Transmission Date: 20160304
  Serious: Yes (Other)
  Sender: FDA-Public Use
  Company Number: SG-APOPHARMA-2015AP014255

PATIENT
  Age: 47 Year
  Sex: Female
  Weight: 42 kg

DRUGS (7)
  1. FERRIPROX [Suspect]
     Active Substance: DEFERIPRONE
     Indication: THALASSAEMIA BETA
     Dosage: 12 MG/KG, TID
     Route: 048
     Dates: start: 2008, end: 20150804
  2. TRISEQUENS                         /00441501/ [Concomitant]
     Indication: OESTROGEN REPLACEMENT THERAPY
     Dosage: 1 DF, Q.AM
     Route: 048
  3. FERRIPROX [Suspect]
     Active Substance: DEFERIPRONE
     Indication: IRON OVERLOAD
  4. FOLATE [Concomitant]
     Active Substance: FOLATE SODIUM
     Indication: THALASSAEMIA
     Dosage: 5 MG, Q.AM
     Route: 048
     Dates: start: 1990
  5. CALCIUM CARBONATE. [Concomitant]
     Active Substance: CALCIUM CARBONATE
     Indication: HYPOCALCAEMIA
     Dosage: 625 MG, BID
     Route: 048
     Dates: start: 2000
  6. ASPIRIN                            /00002701/ [Concomitant]
     Active Substance: ASPIRIN
     Indication: SPLENECTOMY
     Dosage: 100 MG, Q.AM
     Route: 048
     Dates: start: 2000
  7. CALCITRIOL. [Concomitant]
     Active Substance: CALCITRIOL
     Indication: HYPOPARATHYROIDISM
     Dosage: UNK
     Route: 048
     Dates: start: 2005

REACTIONS (1)
  - Hypoacusis [Recovering/Resolving]

NARRATIVE: CASE EVENT DATE: 20150804
